FAERS Safety Report 7034080-4 (Version None)
Quarter: 2010Q4

REPORT INFORMATION
  Report Type: 
  Country: None (occurrence: None)
  Receive Date: 20101006
  Receipt Date: 20100926
  Transmission Date: 20110411
  Serious: Yes (Other)
  Sender: FDA-Public Use
  Company Number: GB-DEXPHARM-20101516

PATIENT
  Age: 58 Year
  Sex: Female

DRUGS (8)
  1. OMEPRAZOLE [Suspect]
     Indication: GASTROOESOPHAGEAL REFLUX DISEASE
     Dates: start: 20061101, end: 20100625
  2. LANSOPRAZOLE [Concomitant]
     Indication: GASTROOESOPHAGEAL REFLUX DISEASE
     Dosage: 30 MG MILLIGRAM(S) ORAL
     Route: 048
     Dates: start: 19980101, end: 20060801
  3. CITALOPRAM [Concomitant]
  4. DIGOXIN [Concomitant]
  5. IRBESARTAN [Concomitant]
  6. LOPERAMIDE [Concomitant]
  7. VERAPAMIL [Concomitant]
  8. WARFARIN SODIUM [Concomitant]

REACTIONS (2)
  - DIARRHOEA [None]
  - HYPOMAGNESAEMIA [None]
